FAERS Safety Report 25546379 (Version 2)
Quarter: 2025Q3

REPORT INFORMATION
  Report Type: Spontaneous
  Country: US (occurrence: US)
  Receive Date: 20250713
  Receipt Date: 20250801
  Transmission Date: 20251020
  Serious: Yes (Death, Life-Threatening, Other)
  Sender: AMGEN
  Company Number: US-AMGEN-USASP2025136604

PATIENT

DRUGS (3)
  1. PANITUMUMAB [Suspect]
     Active Substance: PANITUMUMAB
     Indication: Neoplasm
     Route: 065
  2. AFATINIB [Suspect]
     Active Substance: AFATINIB
     Indication: Neoplasm
     Dosage: UNK, QD (20 MG, 30 MG, OR 40 MG DAILY IN 21-DAY CYCLES)
     Route: 048
  3. CAPECITABINE [Suspect]
     Active Substance: CAPECITABINE
     Indication: Neoplasm
     Dosage: 1000 MILLIGRAM/SQ. METER, BID ON DAYS 1-14
     Route: 048

REACTIONS (23)
  - Disease progression [Fatal]
  - Diarrhoea [Unknown]
  - Stomatitis [Unknown]
  - Nausea [Unknown]
  - Palmar-plantar erythrodysaesthesia syndrome [Unknown]
  - Fatigue [Unknown]
  - Decreased appetite [Unknown]
  - Anaemia [Unknown]
  - Dyspnoea [Unknown]
  - Hypokalaemia [Unknown]
  - Neuropathy peripheral [Unknown]
  - Dysgeusia [Unknown]
  - Aspartate aminotransferase increased [Unknown]
  - Alanine aminotransferase increased [Unknown]
  - Muscular weakness [Unknown]
  - Regurgitation [Unknown]
  - Flatulence [Unknown]
  - Vomiting [Unknown]
  - Abdominal pain [Unknown]
  - Epistaxis [Unknown]
  - Rash [Unknown]
  - Back pain [Unknown]
  - Chills [Unknown]
